FAERS Safety Report 15574377 (Version 10)
Quarter: 2018Q4

REPORT INFORMATION
  Report Type: Spontaneous
  Country: GB (occurrence: GB)
  Receive Date: 20181101
  Receipt Date: 20181128
  Transmission Date: 20190205
  Serious: Yes (Death, Other)
  Sender: FDA-Public Use
  Company Number: PHHY2018GB143353

PATIENT
  Sex: Female

DRUGS (11)
  1. CICLOSPORIN [Suspect]
     Active Substance: CYCLOSPORINE
     Indication: JUVENILE IDIOPATHIC ARTHRITIS
     Dosage: UNK
     Route: 065
  2. KINERET [Suspect]
     Active Substance: ANAKINRA
     Indication: STILL^S DISEASE
     Route: 065
  3. METHOTREXATE. [Suspect]
     Active Substance: METHOTREXATE
     Indication: JUVENILE IDIOPATHIC ARTHRITIS
     Dosage: UNK
     Route: 065
  4. ALEMTUZUMAB [Suspect]
     Active Substance: ALEMTUZUMAB
     Indication: BONE MARROW CONDITIONING REGIMEN
     Dosage: 0.2 MG/KG, QD,(FROM DAYS 8 TO 4)
     Route: 065
  5. FLUDARABINE [Suspect]
     Active Substance: FLUDARABINE PHOSPHATE
     Indication: BONE MARROW CONDITIONING REGIMEN
     Dosage: 30 MG/M2, QD,FROM DAYS 7 TO 3
     Route: 065
  6. TOCILIZUMAB. [Suspect]
     Active Substance: TOCILIZUMAB
     Indication: STILL^S DISEASE
     Dosage: UNK
     Route: 065
  7. INFLIXIMAB [Suspect]
     Active Substance: INFLIXIMAB
     Indication: JUVENILE IDIOPATHIC ARTHRITIS
     Dosage: UNK
     Route: 065
  8. ADALIMUMAB [Suspect]
     Active Substance: ADALIMUMAB
     Indication: STILL^S DISEASE
     Route: 065
  9. MELPHALAN. [Suspect]
     Active Substance: MELPHALAN
     Indication: BONE MARROW CONDITIONING REGIMEN
     Dosage: 140 MG/M2,(DAY 3),
     Route: 065
  10. MELPHALAN. [Suspect]
     Active Substance: MELPHALAN
     Dosage: 140 MG/M2, QD
     Route: 065
     Dates: start: 2010, end: 2010
  11. ETANERCEPT [Suspect]
     Active Substance: ETANERCEPT
     Indication: STILL^S DISEASE
     Dosage: UNK
     Route: 065

REACTIONS (24)
  - Pancytopenia [Unknown]
  - Growth failure [Not Recovered/Not Resolved]
  - Epstein-Barr viraemia [Fatal]
  - Left ventricular dysfunction [Unknown]
  - Graft versus host disease in skin [Fatal]
  - BK virus infection [Fatal]
  - Serratia infection [Unknown]
  - Drug ineffective [Unknown]
  - Human herpesvirus 6 infection [Unknown]
  - Herpes zoster [Fatal]
  - Thrombocytopenia [Unknown]
  - Adenovirus infection [Unknown]
  - Off label use [Unknown]
  - Haemophagocytic lymphohistiocytosis [Unknown]
  - Graft versus host disease in gastrointestinal tract [Fatal]
  - Viraemia [Fatal]
  - Osteonecrosis [Unknown]
  - Sepsis [Fatal]
  - Cytomegalovirus viraemia [Unknown]
  - Neutropenia [Unknown]
  - Encephalitis viral [Unknown]
  - Pneumonitis [Unknown]
  - Cytomegalovirus infection [Unknown]
  - Fasciitis [Unknown]
